FAERS Safety Report 8827399 (Version 1)
Quarter: 2012Q4

REPORT INFORMATION
  Report Type: 
  Country: US (occurrence: US)
  Receive Date: 20121008
  Receipt Date: 20121008
  Transmission Date: 20130627
  Serious: Yes (Other)
  Sender: FDA-Public Use
  Company Number: US-JNJFOC-20121000476

PATIENT
  Age: 22 Year
  Sex: Female
  Weight: 86.18 kg

DRUGS (4)
  1. DURAGESIC [Suspect]
     Indication: BRAIN OPERATION
     Route: 062
     Dates: start: 20120922
  2. DILAUDID [Concomitant]
     Indication: DRUG INEFFECTIVE
     Route: 048
     Dates: start: 20120924
  3. GABAPENTIN [Concomitant]
     Indication: PAIN
     Route: 048
     Dates: start: 201205
  4. ZOFRAN [Concomitant]
     Indication: NAUSEA
     Route: 048
     Dates: start: 2011

REACTIONS (10)
  - Dehydration [Not Recovered/Not Resolved]
  - Application site erythema [Not Recovered/Not Resolved]
  - Nausea [Recovered/Resolved]
  - Skin discolouration [Recovered/Resolved]
  - Malaise [Not Recovered/Not Resolved]
  - Chromaturia [Not Recovered/Not Resolved]
  - Product quality issue [Unknown]
  - Drug effect decreased [Not Recovered/Not Resolved]
  - Drug effect increased [Not Recovered/Not Resolved]
  - Cold sweat [Not Recovered/Not Resolved]
